FAERS Safety Report 25184138 (Version 2)
Quarter: 2025Q2

REPORT INFORMATION
  Report Type: Report from Study
  Country: DE (occurrence: DE)
  Receive Date: 20250410
  Receipt Date: 20250425
  Transmission Date: 20250716
  Serious: Yes (Hospitalization)
  Sender: PFIZER
  Company Number: None

PATIENT
  Age: 12 Year
  Sex: Female
  Weight: 48 kg

DRUGS (61)
  1. HEPARIN SODIUM [Suspect]
     Active Substance: HEPARIN SODIUM
     Indication: Thrombosis prophylaxis
     Route: 042
     Dates: start: 19980318, end: 19980320
  2. HEPARIN SODIUM [Suspect]
     Active Substance: HEPARIN SODIUM
     Route: 042
     Dates: start: 19980326
  3. LEUCOVORIN [Suspect]
     Active Substance: LEUCOVORIN\LEUCOVORIN CALCIUM
     Indication: Non-Hodgkin^s lymphoma
     Route: 042
     Dates: start: 19980327
  4. METHOTREXATE SODIUM [Suspect]
     Active Substance: METHOTREXATE SODIUM
     Route: 037
     Dates: start: 19980318, end: 19980326
  5. ETOPOSIDE [Suspect]
     Active Substance: ETOPOSIDE
     Route: 042
     Dates: start: 19980328, end: 19980328
  6. VINCRISTINE SULFATE [Suspect]
     Active Substance: VINCRISTINE SULFATE
     Route: 042
     Dates: start: 19980325, end: 19980325
  7. CYTARABINE [Suspect]
     Active Substance: CYTARABINE
     Route: 050
     Dates: start: 19980328, end: 19980328
  8. CYTARABINE [Suspect]
     Active Substance: CYTARABINE
     Route: 050
     Dates: start: 19980318, end: 19980326
  9. TRAMADOL [Suspect]
     Active Substance: TRAMADOL
     Route: 048
     Dates: start: 19980317, end: 19980317
  10. ACETAMINOPHEN [Suspect]
     Active Substance: ACETAMINOPHEN
     Indication: Pain
     Route: 054
     Dates: start: 19980301, end: 19980312
  11. ACETAMINOPHEN [Suspect]
     Active Substance: ACETAMINOPHEN
     Route: 054
     Dates: start: 19980316, end: 19980316
  12. DEXAMETHASONE SODIUM PHOSPHATE [Suspect]
     Active Substance: DEXAMETHASONE SODIUM PHOSPHATE
     Indication: Non-Hodgkin^s lymphoma
     Route: 048
     Dates: start: 19980318, end: 19980325
  13. DEXAMETHASONE SODIUM PHOSPHATE [Suspect]
     Active Substance: DEXAMETHASONE SODIUM PHOSPHATE
     Indication: Chemotherapy
     Route: 048
     Dates: start: 19980325
  14. ASPIRIN [Suspect]
     Active Substance: ASPIRIN
     Indication: Pyrexia
     Route: 048
     Dates: start: 19980317, end: 19980317
  15. SULFAMERAZINE\TRIMETHOPRIM [Suspect]
     Active Substance: SULFAMERAZINE\TRIMETHOPRIM
     Indication: Osteolysis
     Route: 048
     Dates: start: 19980318, end: 19980324
  16. CHLORPHENETHAZINE MALONATE [Suspect]
     Active Substance: CHLORPHENETHAZINE MALONATE
     Indication: Vomiting
     Route: 054
     Dates: start: 19980321, end: 19980321
  17. COLISTIN [Suspect]
     Active Substance: COLISTIN
     Indication: Osteolysis
     Route: 042
     Dates: start: 19980318, end: 19980324
  18. COLISTIN [Suspect]
     Active Substance: COLISTIN
     Route: 042
     Dates: start: 19980327
  19. PROPOFOL [Suspect]
     Active Substance: PROPOFOL
     Indication: Sedation
     Route: 042
     Dates: start: 19980316, end: 19980316
  20. MEPERIDINE [Suspect]
     Active Substance: MEPERIDINE
     Indication: Analgesic therapy
     Route: 042
     Dates: start: 19980316, end: 19980316
  21. MIDAZOLAM MALEATE [Suspect]
     Active Substance: MIDAZOLAM MALEATE
     Indication: Sedation
     Route: 048
     Dates: start: 19980316, end: 19980316
  22. CYCLOPHOSPHAMIDE [Suspect]
     Active Substance: CYCLOPHOSPHAMIDE
     Indication: Non-Hodgkin^s lymphoma
     Route: 042
     Dates: start: 19980318, end: 19980319
  23. ROCURONIUM BROMIDE [Suspect]
     Active Substance: ROCURONIUM BROMIDE
     Indication: Muscle relaxant therapy
     Route: 042
     Dates: start: 19980316, end: 19980316
  24. DIMETHINDENE [Suspect]
     Active Substance: DIMETHINDENE
     Indication: Urticaria
     Route: 048
     Dates: start: 19980323
  25. DIMETHINDENE [Suspect]
     Active Substance: DIMETHINDENE
     Indication: Pruritus
  26. FUROSEMIDE\TRIAMTERENE [Suspect]
     Active Substance: FUROSEMIDE\TRIAMTERENE
     Indication: Oedema
     Route: 048
     Dates: start: 19980318, end: 19980320
  27. FUROSEMIDE\TRIAMTERENE [Suspect]
     Active Substance: FUROSEMIDE\TRIAMTERENE
     Route: 048
     Dates: start: 19980325
  28. FUROSEMIDE\TRIAMTERENE [Suspect]
     Active Substance: FUROSEMIDE\TRIAMTERENE
     Route: 048
     Dates: start: 19980325
  29. ALBUMIN HUMAN [Suspect]
     Active Substance: ALBUMIN HUMAN
     Indication: Hypoalbuminaemia
     Route: 042
     Dates: start: 19980320, end: 19980320
  30. ERGOLOID MESYLATES [Suspect]
     Active Substance: ERGOLOID MESYLATES
     Indication: Premedication
     Route: 042
     Dates: start: 19980316, end: 19980316
  31. IFOSFAMIDE [Suspect]
     Active Substance: IFOSFAMIDE
     Indication: Non-Hodgkin^s lymphoma
     Route: 042
     Dates: start: 19980325
  32. SODIUM PHOSPHATE, DIBASIC\SODIUM PHOSPHATE, MONOBASIC, ANHYDROUS [Suspect]
     Active Substance: SODIUM PHOSPHATE, DIBASIC\SODIUM PHOSPHATE, MONOBASIC, ANHYDROUS
     Indication: Constipation
     Route: 054
     Dates: start: 19980328, end: 19980328
  33. SODIUM GLYCEROPHOSPHATE [Suspect]
     Active Substance: SODIUM GLYCEROPHOSPHATE
     Indication: Chemotherapy
     Route: 042
     Dates: start: 19980326, end: 19980326
  34. TROPISETRON HYDROCHLORIDE [Suspect]
     Active Substance: TROPISETRON HYDROCHLORIDE
     Indication: Vomiting
     Route: 042
     Dates: start: 19980318, end: 19980320
  35. TROPISETRON HYDROCHLORIDE [Suspect]
     Active Substance: TROPISETRON HYDROCHLORIDE
     Route: 042
     Dates: start: 19980325
  36. NOVALGIN (METAMIZOLE SODIUM) [Suspect]
     Active Substance: METAMIZOLE SODIUM
     Indication: Pain
     Route: 048
     Dates: start: 19980312, end: 19980316
  37. NOVALGIN (METAMIZOLE SODIUM) [Suspect]
     Active Substance: METAMIZOLE SODIUM
     Route: 048
     Dates: start: 19980318, end: 19980319
  38. NOVALGIN (METAMIZOLE SODIUM) [Suspect]
     Active Substance: METAMIZOLE SODIUM
     Route: 048
     Dates: start: 19980323, end: 19980324
  39. NOVALGIN (METAMIZOLE SODIUM) [Suspect]
     Active Substance: METAMIZOLE SODIUM
     Route: 048
     Dates: start: 19980328, end: 19980328
  40. NYSTATIN [Suspect]
     Active Substance: NYSTATIN
     Indication: Candida infection
     Route: 048
     Dates: start: 19980318
  41. POVIDONE-IODINE [Suspect]
     Active Substance: POVIDONE-IODINE
     Indication: Rash
     Route: 061
     Dates: start: 19980327
  42. PROMETHAZINE HYDROCHLORIDE [Suspect]
     Active Substance: PROMETHAZINE HYDROCHLORIDE
     Indication: Sedation
     Route: 042
     Dates: start: 19980316, end: 19980316
  43. PREDNISOLONE SODIUM SUCCINATE [Suspect]
     Active Substance: PREDNISOLONE SODIUM SUCCINATE
     Indication: Non-Hodgkin^s lymphoma
     Route: 037
     Dates: start: 19980318, end: 19980318
  44. RANITIDINE HYDROCHLORIDE [Suspect]
     Active Substance: RANITIDINE HYDROCHLORIDE
     Indication: Prophylaxis
     Route: 048
     Dates: start: 19980320
  45. SUFENTA [Suspect]
     Active Substance: SUFENTANIL CITRATE
     Indication: Anaesthesia
     Route: 042
     Dates: start: 19980316, end: 19980316
  46. BUPRENORPHINE HYDROCHLORIDE [Suspect]
     Active Substance: BUPRENORPHINE HYDROCHLORIDE
     Indication: Prophylaxis
     Route: 042
     Dates: start: 19980316, end: 19980316
  47. MESNA [Suspect]
     Active Substance: MESNA
     Indication: Prophylaxis urinary tract infection
     Route: 042
     Dates: start: 19980325
  48. HEPARIN SODIUM [Suspect]
     Active Substance: HEPARIN SODIUM
     Indication: Thrombosis prophylaxis
     Route: 042
     Dates: start: 19980316, end: 19980316
  49. ALLOPURINOL [Suspect]
     Active Substance: ALLOPURINOL
     Indication: Hyperuricaemia
     Route: 048
     Dates: start: 19980318, end: 19980324
  50. CLINDAMYCIN HYDROCHLORIDE [Concomitant]
     Active Substance: CLINDAMYCIN HYDROCHLORIDE
     Indication: Mastitis
     Route: 048
     Dates: start: 19980305, end: 19980309
  51. CALCIUM FORTE [Concomitant]
     Indication: Hypocalcaemia
     Route: 048
     Dates: start: 19980325, end: 19980325
  52. ELECTROLYTES NOS [Concomitant]
     Active Substance: ELECTROLYTES NOS
     Indication: Hypovolaemia
     Route: 042
     Dates: start: 19980316, end: 19980316
  53. EMLA [Concomitant]
     Active Substance: LIDOCAINE\PRILOCAINE
     Indication: Anaesthesia
     Route: 061
     Dates: start: 19980316, end: 19980316
  54. DIMETHINDENE [Concomitant]
     Active Substance: DIMETHINDENE
     Indication: Pruritus
     Route: 061
     Dates: start: 19980327
  55. DEXTROSE [Concomitant]
     Active Substance: DEXTROSE MONOHYDRATE
     Route: 042
     Dates: start: 19980318
  56. KCL [Concomitant]
     Active Substance: POTASSIUM CHLORIDE
     Indication: Hypokalaemia
     Route: 042
     Dates: start: 19980318
  57. LINIMENT AQUOS SR [Concomitant]
     Indication: Drug eruption
     Route: 061
     Dates: start: 19980326
  58. NA BICARB ISOT LE [Concomitant]
     Indication: Electrolyte imbalance
     Route: 042
     Dates: start: 19980318, end: 19980326
  59. SODIUM CHLORIDE [Concomitant]
     Active Substance: SODIUM CHLORIDE
     Route: 042
     Dates: start: 19980318
  60. PRURICALM [Concomitant]
     Indication: Rash pruritic
     Route: 061
     Dates: start: 19980327
  61. PYOKTANIN [Concomitant]
     Indication: Rash
     Route: 061
     Dates: start: 19980327

REACTIONS (14)
  - Anaemia [Unknown]
  - Vomiting [Unknown]
  - Alanine aminotransferase increased [Unknown]
  - Hypoalbuminaemia [Recovered/Resolved]
  - Hypocalcaemia [Recovered/Resolved]
  - Hypokalaemia [Unknown]
  - Constipation [Unknown]
  - Oedema [Unknown]
  - Oral candidiasis [Unknown]
  - Stevens-Johnson syndrome [Recovered/Resolved]
  - Nausea [Unknown]
  - Osteolysis [Unknown]
  - Erythema multiforme [Recovered/Resolved]
  - Oral mucosal eruption [Recovered/Resolved]

NARRATIVE: CASE EVENT DATE: 19980301
